FAERS Safety Report 24388338 (Version 1)
Quarter: 2024Q4

REPORT INFORMATION
  Report Type: Spontaneous
  Country: US (occurrence: None)
  Receive Date: 20241001
  Receipt Date: 20241001
  Transmission Date: 20250115
  Serious: No
  Sender: Public
  Company Number: None

PATIENT
  Age: 46 Year
  Sex: Female
  Weight: 103.5 kg

DRUGS (4)
  1. CHLORHEXIDINE GLUCONATE [Suspect]
     Active Substance: CHLORHEXIDINE GLUCONATE
     Indication: Preoperative care
     Dosage: OTHER QUANTITY : 1 PACK;?FREQUENCY : AS NEEDED;?
     Route: 061
     Dates: start: 20240926, end: 20240926
  2. Dezvenlafaxine [Concomitant]
  3. certrazine [Concomitant]
  4. PROBIOTICS NOS [Concomitant]
     Active Substance: PROBIOTICS NOS

REACTIONS (2)
  - Application site rash [None]
  - Dermatitis contact [None]

NARRATIVE: CASE EVENT DATE: 20241001
